FAERS Safety Report 10051294 (Version 2)
Quarter: 2014Q2

REPORT INFORMATION
  Report Type: Spontaneous
  Country: US (occurrence: US)
  Receive Date: 20140401
  Receipt Date: 20140507
  Transmission Date: 20141212
  Serious: No
  Sender: FDA-Public Use
  Company Number: US-PFIZER INC-2014089351

PATIENT
  Age: 85 Year
  Sex: Female
  Weight: 63.49 kg

DRUGS (5)
  1. LYRICA [Suspect]
     Dosage: 75 MG, 3X/DAY
     Route: 048
     Dates: start: 20140303
  2. VITAMIN B12 [Concomitant]
     Dosage: UNK, MONTHLY (SHOTS ONCE A MONTH)
  3. FUROSEMIDE [Concomitant]
     Dosage: 20 MG, ALTERNATE DAY (ONCE EVERY OTHER DAY)
  4. LISINOPRIL [Concomitant]
     Dosage: 10 MG, 1X/DAY
  5. SIMVASTATIN [Concomitant]
     Dosage: 40 MG, 1X/DAY

REACTIONS (2)
  - Visual acuity reduced [Unknown]
  - Vision blurred [Unknown]
